FAERS Safety Report 6622816-3 (Version None)
Quarter: 2010Q1

REPORT INFORMATION
  Report Type: 
  Country: None (occurrence: None)
  Receive Date: 20100310
  Receipt Date: 20100302
  Transmission Date: 20100710
  Serious: Yes (Other)
  Sender: FDA-Public Use
  Company Number: US-ASTRAZENECA-2010SE05217

PATIENT
  Age: 199 Month
  Sex: Female
  Weight: 59 kg

DRUGS (9)
  1. SEROQUEL XR [Suspect]
     Indication: AFFECT LABILITY
     Route: 048
     Dates: start: 20091201
  2. SEROQUEL XR [Suspect]
     Route: 048
  3. SEROQUEL XR [Suspect]
     Dosage: VARIOUS DOSES.
     Route: 048
  4. VISTERAL [Concomitant]
     Route: 065
  5. SEASONIQUE [Concomitant]
     Route: 048
  6. LEVSIN [Concomitant]
     Route: 065
  7. ADVAIR DISKUS 100/50 [Concomitant]
     Route: 065
  8. ALBUTEROL [Concomitant]
     Dosage: AS REQUIRED.
     Route: 055
  9. PROZAC [Concomitant]
     Dosage: WITH POOR COMPLAINCE.
     Route: 065

REACTIONS (1)
  - HALLUCINATION [None]
